FAERS Safety Report 8737716 (Version 2)
Quarter: 2012Q4

REPORT INFORMATION
  Report Type: Report from Study
  Country: JP (occurrence: JP)
  Receive Date: 20120822
  Receipt Date: 20120911
  Transmission Date: 20130627
  Serious: Yes (Hospitalization)
  Sender: FDA-Public Use
  Company Number: JP-009507513-1208JPN003948

PATIENT

DRUGS (3)
  1. COSOPT OPHTHALMIC SOLUTION [Suspect]
     Indication: GLAUCOMA
     Dosage: 1 Gtt, bid
     Route: 047
     Dates: start: 20110713, end: 20111108
  2. AMARYL [Concomitant]
     Indication: DIABETES MELLITUS
     Dosage: 1 mg, qd
     Route: 048
  3. NELBIS [Concomitant]
     Indication: DIABETES MELLITUS
     Dosage: 250 mg, bid
     Route: 048

REACTIONS (1)
  - Adverse event [Unknown]
